FAERS Safety Report 9095795 (Version 8)
Quarter: 2014Q3

REPORT INFORMATION
  Report Type: Spontaneous
  Country: US (occurrence: US)
  Receive Date: 20130219
  Receipt Date: 20140725
  Transmission Date: 20150326
  Serious: Yes (Hospitalization, Other)
  Sender: FDA-Public Use
  Company Number: US-009507513-1302USA008536

PATIENT
  Sex: Male

DRUGS (8)
  1. FOSAMAX [Suspect]
     Active Substance: ALENDRONATE SODIUM
     Indication: OSTEOPOROSIS
     Dosage: 70 MG, QW
     Route: 048
     Dates: start: 20090101, end: 20090829
  2. ALENDRONATE SODIUM. [Suspect]
     Active Substance: ALENDRONATE SODIUM
     Dosage: 70 MG, UNK
     Route: 048
     Dates: start: 20090122, end: 201212
  3. PREDNISONE. [Concomitant]
     Active Substance: PREDNISONE
     Indication: SKIN DISORDER
  4. PREDNISONE. [Concomitant]
     Active Substance: PREDNISONE
     Indication: DERMATITIS ATOPIC
     Dosage: 50 MG, QD
     Route: 048
     Dates: start: 2006
  5. DIAZEPAM. [Concomitant]
     Active Substance: DIAZEPAM
     Indication: ANXIETY
     Dosage: UNK
     Dates: start: 2006
  6. FOSAMAX [Suspect]
     Active Substance: ALENDRONATE SODIUM
     Indication: BONE DENSITY DECREASED
  7. ALENDRONATE SODIUM. [Suspect]
     Active Substance: ALENDRONATE SODIUM
     Indication: OSTEOPOROSIS
     Dosage: 70 MG, QW
     Route: 048
  8. ALENDRONATE SODIUM. [Suspect]
     Active Substance: ALENDRONATE SODIUM
     Indication: BONE DENSITY DECREASED
     Dosage: 70 MG, QW
     Route: 048

REACTIONS (60)
  - Joint effusion [Unknown]
  - Tendon disorder [Unknown]
  - Debridement [Unknown]
  - Arthritis [Unknown]
  - Lipoma [Unknown]
  - Muscular weakness [Unknown]
  - Gallbladder operation [Unknown]
  - Cough [Unknown]
  - Alveolar osteitis [Unknown]
  - Fall [Unknown]
  - Pain [Unknown]
  - Muscle rupture [Unknown]
  - Sinus disorder [Unknown]
  - Jaw disorder [Unknown]
  - Myofascial pain syndrome [Unknown]
  - Fall [Unknown]
  - Gastrooesophageal reflux disease [Unknown]
  - Arthralgia [Unknown]
  - Oral surgery [Unknown]
  - Cyst [Unknown]
  - Osteoporosis [Unknown]
  - Tooth extraction [Unknown]
  - Anxiety [Unknown]
  - Increased tendency to bruise [Unknown]
  - Thirst [Unknown]
  - Tooth fracture [Unknown]
  - Paraesthesia [Unknown]
  - Tremor [Unknown]
  - Hypersensitivity [Unknown]
  - Internal fixation of fracture [Unknown]
  - Removal of internal fixation [Unknown]
  - Cholecystectomy [Unknown]
  - Nasal septum deviation [Unknown]
  - Tendon operation [Unknown]
  - Hip fracture [Recovered/Resolved]
  - Jaw disorder [Unknown]
  - Nasal septal operation [Unknown]
  - Ear tube insertion [Unknown]
  - Depression [Unknown]
  - Tooth extraction [Unknown]
  - Dyspnoea [Unknown]
  - Scoliosis [Unknown]
  - Rotator cuff syndrome [Unknown]
  - Periodontal operation [Unknown]
  - Cyst removal [Unknown]
  - Arthroscopy [Unknown]
  - Tenotomy [Unknown]
  - Medical device pain [Unknown]
  - Bursitis [Not Recovered/Not Resolved]
  - Dry mouth [Unknown]
  - Spinal osteoarthritis [Unknown]
  - Back pain [Unknown]
  - Diarrhoea [Unknown]
  - Bone trimming [Unknown]
  - Foot fracture [Recovering/Resolving]
  - Drug dependence [Not Recovered/Not Resolved]
  - Barrett^s oesophagus [Unknown]
  - Tendon rupture [Unknown]
  - Drug ineffective [Unknown]
  - Oesophagitis [Not Recovered/Not Resolved]

NARRATIVE: CASE EVENT DATE: 20100215
